FAERS Safety Report 10759692 (Version 1)
Quarter: 2015Q1

REPORT INFORMATION
  Report Type: Report from Study
  Country: US (occurrence: US)
  Receive Date: 20150203
  Receipt Date: 20150203
  Transmission Date: 20150721
  Serious: Yes (Hospitalization, Other)
  Sender: FDA-Public Use
  Company Number: US-ABBVIE-15P-163-1340635-00

PATIENT
  Sex: Female

DRUGS (1)
  1. HUMIRA [Suspect]
     Active Substance: ADALIMUMAB
     Indication: RHEUMATOID ARTHRITIS
     Route: 058

REACTIONS (8)
  - Craniocerebral injury [Unknown]
  - Skin cancer [Recovering/Resolving]
  - Fall [Unknown]
  - Fall [Not Recovered/Not Resolved]
  - Ligament rupture [Unknown]
  - Bone cancer [Recovering/Resolving]
  - Joint injury [Unknown]
  - Memory impairment [Not Recovered/Not Resolved]
